FAERS Safety Report 5170221-1 (Version None)
Quarter: 2006Q4

REPORT INFORMATION
  Report Type: 
  Country: None (occurrence: None)
  Receive Date: 20061212
  Receipt Date: 20061205
  Transmission Date: 20070319
  Serious: Yes (Other)
  Sender: FDA-Public Use
  Company Number: US-JNJFOC-20061201666

PATIENT
  Sex: Female
  Weight: 68.49 kg

DRUGS (7)
  1. LEVAQUIN [Suspect]
     Indication: URINARY TRACT INFECTION
     Route: 065
     Dates: start: 20060926, end: 20060928
  2. ASPIRIN [Concomitant]
     Route: 065
  3. ZETIA [Concomitant]
     Indication: HYPERLIPIDAEMIA
     Route: 065
  4. LIPITOR [Concomitant]
     Indication: HYPERLIPIDAEMIA
     Route: 065
  5. TOPRIL [Concomitant]
     Indication: HYPERTENSION
     Route: 065
  6. IMDUR [Concomitant]
     Indication: HYPERTENSION
     Route: 065
  7. ALTACE [Concomitant]
     Indication: HYPERTENSION
     Route: 065

REACTIONS (6)
  - BEDRIDDEN [None]
  - LIGAMENT DISORDER [None]
  - MUSCLE SPASMS [None]
  - MYALGIA [None]
  - TENDONITIS [None]
  - WALKING AID USER [None]
